FAERS Safety Report 6663693-4 (Version None)
Quarter: 2010Q1

REPORT INFORMATION
  Report Type: 
  Country: None (occurrence: None)
  Receive Date: 20100331
  Receipt Date: 20100331
  Transmission Date: 20100710
  Serious: Yes (Hospitalization)
  Sender: FDA-Public Use
  Company Number: None

PATIENT
  Sex: Male
  Weight: 117.8899 kg

DRUGS (1)
  1. ERBITUX [Suspect]
     Indication: RECTAL CANCER
     Dosage: 88- MG Q WEEK IV
     Route: 042
     Dates: start: 20100319, end: 20100319

REACTIONS (1)
  - PULMONARY EMBOLISM [None]
